FAERS Safety Report 25768920 (Version 1)
Quarter: 2025Q3

REPORT INFORMATION
  Report Type: Spontaneous
  Country: US (occurrence: US)
  Receive Date: 20250905
  Receipt Date: 20250905
  Transmission Date: 20251021
  Serious: No
  Sender: ABBVIE
  Company Number: US-ABBVIE-6440060

PATIENT
  Sex: Female

DRUGS (1)
  1. OZURDEX [Suspect]
     Active Substance: DEXAMETHASONE
     Indication: Product used for unknown indication
     Route: 050
     Dates: start: 202505, end: 202505

REACTIONS (3)
  - Eye pain [Unknown]
  - Device dislocation [Unknown]
  - Headache [Unknown]

NARRATIVE: CASE EVENT DATE: 20250101
